FAERS Safety Report 16236662 (Version 3)
Quarter: 2019Q2

REPORT INFORMATION
  Report Type: Spontaneous
  Country: US (occurrence: US)
  Receive Date: 20190425
  Receipt Date: 20190628
  Transmission Date: 20190711
  Serious: No
  Sender: FDA-Public Use
  Company Number: US-009507513-1904USA008940

PATIENT

DRUGS (1)
  1. ASMANEX [Suspect]
     Active Substance: MOMETASONE FUROATE
     Dosage: 220 MICROGRAMS, 60 DOSE, 1 PUFF BY MOUTH TWICE DAILY
     Route: 055

REACTIONS (6)
  - Poor quality device used [Unknown]
  - Product closure issue [Unknown]
  - Product leakage [Unknown]
  - No adverse event [Unknown]
  - Product dose omission [Unknown]
  - Product quality issue [Unknown]

NARRATIVE: CASE EVENT DATE: 20190417
